FAERS Safety Report 10265861 (Version 1)
Quarter: 2014Q2

REPORT INFORMATION
  Report Type: Spontaneous
  Country: US (occurrence: None)
  Receive Date: 20140625
  Receipt Date: 20140625
  Transmission Date: 20141212
  Serious: Yes (Other)
  Sender: FDA-Public Use
  Company Number: None

PATIENT
  Age: 61 Year
  Sex: Male
  Weight: 68.04 kg

DRUGS (6)
  1. DIVALPROEX SODIUM DELAYED RELEASE [Suspect]
     Indication: BIPOLAR DISORDER
     Dosage: 250 MG, 1250 MG PER DAY, TWICE DAILY, BY MOUTH
     Route: 048
     Dates: start: 20140417, end: 20140514
  2. GABAPENTIN [Concomitant]
  3. BUPROPRION [Concomitant]
  4. ZYPREXA [Concomitant]
  5. TEMAZEPAM [Concomitant]
  6. FLORASTOR [Concomitant]

REACTIONS (2)
  - Affective disorder [None]
  - Depression [None]
